FAERS Safety Report 9157669 (Version 1)
Quarter: 2013Q1

REPORT INFORMATION
  Report Type: Spontaneous
  Country: DK (occurrence: DK)
  Receive Date: 20130312
  Receipt Date: 20130312
  Transmission Date: 20140127
  Serious: Yes (Hospitalization)
  Sender: FDA-Public Use
  Company Number: PHHY2013DK022377

PATIENT
  Age: 31 None
  Sex: Female

DRUGS (4)
  1. METHOTREXATE [Suspect]
     Indication: ARTHRITIS
     Route: 048
  2. REMICADE [Suspect]
     Indication: ARTHRITIS
  3. PREDNISOLON [Concomitant]
  4. CIPRAMIL [Concomitant]

REACTIONS (2)
  - Biopsy liver [Recovered/Resolved]
  - Hepatic enzyme increased [Recovered/Resolved]
